FAERS Safety Report 5278533-8 (Version None)
Quarter: 2007Q1

REPORT INFORMATION
  Report Type: 
  Country: None (occurrence: None)
  Receive Date: 20061213
  Receipt Date: 20050602
  Transmission Date: 20070707
  Serious: No
  Sender: FDA-Public Use
  Company Number: 2005UW09473

PATIENT
  Age: 17 Year
  Sex: Male

DRUGS (10)
  1. SEROQUEL [Suspect]
     Dates: start: 20050201
  2. SEROQUEL [Suspect]
     Dosage: 100 MG HS PO
     Route: 048
     Dates: start: 20050529
  3. SEROQUEL [Suspect]
     Dosage: 200 MG HS PO
     Route: 048
     Dates: start: 20050530
  4. SEROQUEL [Suspect]
     Dosage: 300 MG HS PO
     Route: 048
     Dates: start: 20050531
  5. SEROQUEL [Suspect]
     Dosage: 400 MG PO
     Route: 048
     Dates: start: 20050601
  6. SEROQUEL [Suspect]
     Dosage: 600 MG PO
     Route: 048
     Dates: start: 20050602, end: 20050603
  7. SEROQUEL [Suspect]
     Dosage: 400 MG PO
     Route: 048
     Dates: start: 20050604
  8. ZYPREXA [Suspect]
     Dates: end: 20050201
  9. ZYPREXA [Suspect]
  10. RISPERDAL [Suspect]

REACTIONS (1)
  - TARDIVE DYSKINESIA [None]
